FAERS Safety Report 6160703-8 (Version None)
Quarter: 2009Q2

REPORT INFORMATION
  Report Type: 
  Country: None (occurrence: None)
  Receive Date: 20090420
  Receipt Date: 20090408
  Transmission Date: 20091009
  Serious: Yes (Hospitalization)
  Sender: FDA-Public Use
  Company Number: KR-TEVA-191127ISR

PATIENT
  Sex: Male
  Weight: 61 kg

DRUGS (10)
  1. PACLITAXEL [Suspect]
     Indication: NON-SMALL CELL LUNG CANCER
     Dates: start: 20090206
  2. PACLITAXEL [Concomitant]
  3. CARBOPLATIN [Suspect]
     Indication: NON-SMALL CELL LUNG CANCER
     Route: 042
     Dates: start: 20090206
  4. CP-751,871 [Suspect]
     Indication: NON-SMALL CELL LUNG CANCER
  5. MAGNESIUM OXIDE [Concomitant]
     Dates: start: 20090305
  6. CODEINE [Concomitant]
     Dates: start: 20090305
  7. AMBROXOL ACEFYLLINATE [Concomitant]
     Dates: start: 20090305
  8. AMBROXOL [Concomitant]
     Dates: start: 20090305
  9. LEVOFLOXACIN [Concomitant]
     Dates: start: 20090305
  10. METRONIDAZOLE [Concomitant]
     Dates: start: 20090305

REACTIONS (1)
  - PNEUMONIA ASPIRATION [None]
